FAERS Safety Report 5441401-2 (Version None)
Quarter: 2007Q3

REPORT INFORMATION
  Report Type: 
  Country: None (occurrence: None)
  Receive Date: 20070830
  Receipt Date: 20070830
  Transmission Date: 20080115
  Serious: Yes (Life-Threatening, Hospitalization)
  Sender: FDA-Public Use
  Company Number: None

PATIENT
  Age: 44 Year
  Sex: Female
  Weight: 64.8644 kg

DRUGS (2)
  1. GAMMAGARD [Suspect]
     Indication: MYASTHENIA GRAVIS
     Dosage: 2 INFUSIONS IV DRIP
     Route: 041
     Dates: start: 20070227, end: 20070227
  2. GAMMAGARD [Suspect]

REACTIONS (6)
  - AMNESIA [None]
  - DEMENTIA [None]
  - IMPAIRED WORK ABILITY [None]
  - MENINGITIS [None]
  - MENTAL IMPAIRMENT [None]
  - PHARMACEUTICAL PRODUCT COMPLAINT [None]
